FAERS Safety Report 7806426-8 (Version None)
Quarter: 2011Q4

REPORT INFORMATION
  Report Type: 
  Country: None (occurrence: None)
  Receive Date: 20111011
  Receipt Date: 20111004
  Transmission Date: 20120403
  Serious: Yes (Hospitalization)
  Sender: FDA-Public Use
  Company Number: FR-BRISTOL-MYERS SQUIBB COMPANY-16138729

PATIENT
  Age: 78 Year
  Sex: Female
  Weight: 90 kg

DRUGS (11)
  1. LANTUS [Concomitant]
  2. LASIX [Concomitant]
  3. REPAGLINIDE [Concomitant]
  4. ACETAMINOPHEN AND TRAMADOL HCL [Concomitant]
  5. MOVIPREP [Concomitant]
  6. CITALOPRAM [Concomitant]
  7. COUMADIN [Suspect]
     Dosage: FOR A LONG TIME
     Route: 048
     Dates: end: 20110828
  8. CORDARONE [Concomitant]
  9. PRAVASTATIN [Concomitant]
  10. PERINDOPRIL ERBUMINE [Concomitant]
  11. METFORMIN HCL [Concomitant]

REACTIONS (23)
  - CONJUNCTIVAL HAEMORRHAGE [None]
  - SKELETAL INJURY [None]
  - BLOOD PRESSURE DIASTOLIC INCREASED [None]
  - DYSPNOEA [None]
  - HYPOAESTHESIA [None]
  - INTERNATIONAL NORMALISED RATIO INCREASED [None]
  - LIVEDO RETICULARIS [None]
  - HAEMOGLOBIN DECREASED [None]
  - INFECTION [None]
  - COUGH [None]
  - OEDEMA PERIPHERAL [None]
  - EXCORIATION [None]
  - WHITE BLOOD CELL COUNT INCREASED [None]
  - OVERDOSE [None]
  - CEREBRAL HAEMATOMA [None]
  - HAEMARTHROSIS [None]
  - ATRIAL FIBRILLATION [None]
  - HYPOTENSION [None]
  - FALL [None]
  - PRODUCTIVE COUGH [None]
  - HEART RATE INCREASED [None]
  - DYSPNOEA EXERTIONAL [None]
  - NERVE COMPRESSION [None]
